FAERS Safety Report 5777746-6 (Version None)
Quarter: 2008Q2

REPORT INFORMATION
  Report Type: 
  Country: None (occurrence: None)
  Receive Date: 20080618
  Receipt Date: 20080612
  Transmission Date: 20081010
  Serious: Yes (Death, Hospitalization)
  Sender: FDA-Public Use
  Company Number: FR-WYE-H04461208

PATIENT
  Age: 76 Year
  Sex: Female

DRUGS (1)
  1. OROKEN [Suspect]
     Indication: BRONCHITIS
     Dosage: 200 MG /UNKNOWN
     Route: 048
     Dates: start: 20080216, end: 20080226

REACTIONS (3)
  - CLOSTRIDIUM DIFFICILE COLITIS [None]
  - SEPTIC SHOCK [None]
  - STAPHYLOCOCCAL INFECTION [None]
